FAERS Safety Report 18266383 (Version 1)
Quarter: 2020Q3

REPORT INFORMATION
  Report Type: Spontaneous
  Country: US (occurrence: US)
  Receive Date: 20200915
  Receipt Date: 20200915
  Transmission Date: 20201103
  Serious: No
  Sender: FDA-Public Use
  Company Number: US-AUROBINDO-AUR-APL-2019-062890

PATIENT
  Sex: Female
  Weight: 67.58 kg

DRUGS (6)
  1. LASIX [Concomitant]
     Active Substance: FUROSEMIDE
     Indication: PRODUCT USED FOR UNKNOWN INDICATION
     Dosage: UNK
     Route: 065
  2. LOSARTAN. [Concomitant]
     Active Substance: LOSARTAN
     Indication: PRODUCT USED FOR UNKNOWN INDICATION
     Dosage: UNK
     Route: 065
  3. PAROXETINE TABLETS USP 10MG [Suspect]
     Active Substance: PAROXETINE
     Dosage: FROM 1/2 TO 1/4 (QUARTER) TABLET
     Route: 065
  4. PAROXETINE TABLETS USP 10MG [Suspect]
     Active Substance: PAROXETINE
     Dosage: 1 DOSAGE FORM, SINCE 09 MONTHS
     Route: 048
  5. PAROXETINE TABLETS USP 10MG [Suspect]
     Active Substance: PAROXETINE
     Indication: ANXIETY
     Dosage: 1 DOSAGE FORM, ONCE A DAY, SINCE 10 YEARS
     Route: 065
  6. PAROXETINE TABLETS USP 10MG [Suspect]
     Active Substance: PAROXETINE
     Dosage: FROM 1 TABLET TO 1/2 TABLET
     Route: 065

REACTIONS (6)
  - Incorrect dose administered [Unknown]
  - Nasopharyngitis [Not Recovered/Not Resolved]
  - Sinusitis [Not Recovered/Not Resolved]
  - Influenza [Not Recovered/Not Resolved]
  - Head titubation [Not Recovered/Not Resolved]
  - Dizziness [Not Recovered/Not Resolved]
